FAERS Safety Report 16649387 (Version 2)
Quarter: 2019Q3

REPORT INFORMATION
  Report Type: Spontaneous
  Country: RU (occurrence: RU)
  Receive Date: 20190730
  Receipt Date: 20190828
  Transmission Date: 20191004
  Serious: Yes (Other)
  Sender: FDA-Public Use
  Company Number: RU-BIOMARINAP-RU-2019-124901

PATIENT
  Age: 5 Year
  Sex: Male
  Weight: 15 kg

DRUGS (1)
  1. ALDURAZYME [Suspect]
     Active Substance: LARONIDASE
     Indication: MUCOPOLYSACCHARIDOSIS I
     Dosage: 100 INTERNATIONAL UNIT/KILOGRAM, QW
     Route: 041
     Dates: start: 20180703

REACTIONS (9)
  - Vomiting [Recovered/Resolved]
  - Underdose [Recovered/Resolved]
  - Respiratory tract infection viral [Not Recovered/Not Resolved]
  - Visual impairment [Not Recovered/Not Resolved]
  - Vascular injury [Recovered/Resolved]
  - Infusion site extravasation [Not Recovered/Not Resolved]
  - Anxiety [Recovered/Resolved]
  - Body temperature increased [Recovered/Resolved]
  - Product use issue [Unknown]

NARRATIVE: CASE EVENT DATE: 2019
